FAERS Safety Report 5772601-X (Version None)
Quarter: 2008Q2

REPORT INFORMATION
  Report Type: 
  Country: None (occurrence: None)
  Receive Date: 20080613
  Receipt Date: 20080530
  Transmission Date: 20081010
  Serious: Yes (Other)
  Sender: FDA-Public Use
  Company Number: JP-ALLERGAN-0806960US

PATIENT
  Sex: Male

DRUGS (6)
  1. MIROL [Suspect]
     Indication: GLAUCOMA
     Route: 047
     Dates: start: 20080419, end: 20080522
  2. VIGAMOX [Concomitant]
     Route: 047
  3. FLUMETHOLON [Concomitant]
     Route: 047
  4. TRUSOPT [Concomitant]
     Route: 047
  5. SANPILO [Concomitant]
     Route: 047
  6. XALATAN [Concomitant]
     Route: 047

REACTIONS (1)
  - CORNEAL INFILTRATES [None]
